FAERS Safety Report 9440363 (Version 1)
Quarter: 2013Q3

REPORT INFORMATION
  Report Type: Spontaneous
  Country: US (occurrence: US)
  Receive Date: 20130805
  Receipt Date: 20130805
  Transmission Date: 20140515
  Serious: No
  Sender: FDA-Public Use
  Company Number: US-BAXTER-2013BAX029890

PATIENT
  Age: 9 Month
  Sex: Male

DRUGS (1)
  1. 0.9% SODIUM CHLORIDE INJECTION [Suspect]
     Indication: PRODUCT USED FOR UNKNOWN INDICATION
     Route: 040
     Dates: start: 20130719

REACTIONS (4)
  - Device malfunction [Recovered/Resolved]
  - Swelling [Recovered/Resolved]
  - Pulse absent [Recovered/Resolved]
  - Infusion site extravasation [Recovered/Resolved]
